FAERS Safety Report 9626940 (Version 1)
Quarter: 2013Q4

REPORT INFORMATION
  Report Type: Spontaneous
  Country: FR (occurrence: FR)
  Receive Date: 20131016
  Receipt Date: 20131016
  Transmission Date: 20140711
  Serious: Yes (Other)
  Sender: FDA-Public Use
  Company Number: FR-PFIZER INC-2013292431

PATIENT
  Age: 16 Year
  Sex: Male

DRUGS (9)
  1. DILANTIN [Suspect]
     Indication: STATUS EPILEPTICUS
     Dosage: 6 MG/KG, UNK (250 MG)
     Route: 042
     Dates: start: 19780131
  2. DILANTIN [Suspect]
     Dosage: TOTAL DOSE OF 12 MG/KG (500 MG)
     Route: 042
     Dates: start: 1978, end: 19780201
  3. PHENOBARBITAL [Concomitant]
     Indication: GRAND MAL CONVULSION
     Dosage: 8 MG/KG, DAILY
     Dates: start: 197210
  4. PHENOBARBITAL [Concomitant]
     Dosage: 4 MG/KG, DAILY
     Dates: start: 1974
  5. PHENOBARBITAL [Concomitant]
     Dosage: 3.5 MG/KG, DAILY
     Dates: start: 1977
  6. VALPROIC ACID [Concomitant]
     Indication: GRAND MAL CONVULSION
     Dosage: 12 MG/KG, DAILY
     Dates: start: 197210
  7. VALPROIC ACID [Concomitant]
     Dosage: 30 MG/KG, DAILY
     Dates: start: 1974
  8. CARBAMAZEPINE [Concomitant]
     Indication: TONIC CONVULSION
     Dosage: 6.6 MG/KG, DAILY
     Dates: start: 1974
  9. CLONAZEPAM [Concomitant]
     Dosage: 0.02 MG/KG, DAILY
     Dates: start: 1977

REACTIONS (2)
  - Choreoathetosis [Recovered/Resolved]
  - Hyperkinesia [Recovered/Resolved]
